FAERS Safety Report 6934112-5 (Version None)
Quarter: 2010Q3

REPORT INFORMATION
  Report Type: 
  Country: None (occurrence: None)
  Receive Date: 20100820
  Receipt Date: 20100805
  Transmission Date: 20110219
  Serious: Yes (Hospitalization)
  Sender: FDA-Public Use
  Company Number: FR-MERCK-1008USA02250

PATIENT
  Age: 43 Year

DRUGS (2)
  1. CANCIDAS [Suspect]
     Indication: PROPHYLAXIS
     Route: 065
  2. ANTINEOPLASTIC (UNSPECIFIED) [Concomitant]
     Indication: CONGENITAL APLASTIC ANAEMIA
     Route: 065

REACTIONS (2)
  - BRONCHOPULMONARY ASPERGILLOSIS [None]
  - DRUG INEFFECTIVE [None]
